FAERS Safety Report 15469925 (Version 1)
Quarter: 2018Q4

REPORT INFORMATION
  Report Type: Report from Study
  Country: BR (occurrence: BR)
  Receive Date: 20181005
  Receipt Date: 20181005
  Transmission Date: 20190205
  Serious: Yes (Death)
  Sender: FDA-Public Use
  Company Number: PHHY2018BR117558

PATIENT
  Age: 65 Year
  Sex: Male
  Weight: 75 kg

DRUGS (1)
  1. COSENTYX [Suspect]
     Active Substance: SECUKINUMAB
     Indication: PSORIATIC ARTHROPATHY
     Dosage: 150 MG, QMO
     Route: 058
     Dates: start: 20180315

REACTIONS (1)
  - Death [Fatal]

NARRATIVE: CASE EVENT DATE: 201808
